FAERS Safety Report 4434649-7 (Version None)
Quarter: 2004Q3

REPORT INFORMATION
  Report Type: 
  Country: None (occurrence: None)
  Receive Date: 20040827
  Receipt Date: 20040818
  Transmission Date: 20050211
  Serious: Yes (Hospitalization)
  Sender: FDA-Public Use
  Company Number: FR-ROCHE-377861

PATIENT
  Age: 75 Year
  Sex: Female

DRUGS (4)
  1. LOXEN [Suspect]
     Indication: DRUG USE FOR UNKNOWN INDICATION
     Route: 048
     Dates: start: 20031027
  2. MOPRAL [Suspect]
     Indication: DRUG USE FOR UNKNOWN INDICATION
     Route: 048
     Dates: start: 20031117
  3. EUPRESSYL [Suspect]
     Indication: DRUG USE FOR UNKNOWN INDICATION
     Dosage: THERAPY DURATION REPORTED AS 5 WEEKS AND 3 DAYS
     Route: 048
     Dates: start: 20031027, end: 20031203
  4. HYPERIUM [Suspect]
     Indication: DRUG USE FOR UNKNOWN INDICATION
     Route: 048
     Dates: start: 20031117

REACTIONS (3)
  - LEUKOCYTOCLASTIC VASCULITIS [None]
  - PRURITUS [None]
  - PURPURA [None]
